FAERS Safety Report 6849223-2 (Version None)
Quarter: 2010Q3

REPORT INFORMATION
  Report Type: 
  Country: None (occurrence: None)
  Receive Date: 20100716
  Receipt Date: 20070926
  Transmission Date: 20110219
  Serious: No
  Sender: FDA-Public Use
  Company Number: US-PFIZER INC-2007082093

PATIENT
  Sex: Male
  Weight: 78.2 kg

DRUGS (9)
  1. CHANTIX [Suspect]
     Indication: SMOKING CESSATION THERAPY
     Dates: start: 20070901
  2. VOLTAREN [Concomitant]
  3. ZANTAC [Concomitant]
  4. ACETYLSALICYLIC ACID [Concomitant]
  5. VITAMIN B COMPLEX CAP [Concomitant]
  6. ALTACE [Concomitant]
  7. HYDROCHLOROTHIAZIDE [Concomitant]
     Indication: HYPERTENSION
  8. ALBUTEROL [Concomitant]
  9. SERETIDE MITE [Concomitant]

REACTIONS (7)
  - ASTHENIA [None]
  - DECREASED APPETITE [None]
  - DEPRESSION [None]
  - DYSGEUSIA [None]
  - FATIGUE [None]
  - NAUSEA [None]
  - PERSONALITY CHANGE [None]
